FAERS Safety Report 7089917-X (Version None)
Quarter: 2010Q4

REPORT INFORMATION
  Report Type: 
  Country: None (occurrence: None)
  Receive Date: 20101108
  Receipt Date: 20101026
  Transmission Date: 20110411
  Serious: Yes (Death)
  Sender: FDA-Public Use
  Company Number: DE-AMGEN-QUU435175

PATIENT

DRUGS (8)
  1. ENBREL [Suspect]
     Indication: RHEUMATOID ARTHRITIS
     Dosage: 50 MG, QWK
     Route: 058
     Dates: start: 20080330
  2. METHOTREXATE [Suspect]
     Dosage: UNK UNK, UNK
  3. METHOTREXATE [Suspect]
     Dosage: UNKNOWN
  4. FOLIC ACID [Concomitant]
     Dosage: UNK UNK, UNK
  5. FOLIC ACID [Concomitant]
     Dosage: UNKNOWN
  6. INSULIN [Concomitant]
     Dosage: UNK UNK, UNK
  7. INSULIN [Concomitant]
     Dosage: UNKNOWN
  8. GLUCOCORTICOSTEROID [Concomitant]

REACTIONS (1)
  - DEATH [None]
